FAERS Safety Report 17578174 (Version 1)
Quarter: 2020Q1

REPORT INFORMATION
  Report Type: Spontaneous
  Country: US (occurrence: US)
  Receive Date: 20200324
  Receipt Date: 20200324
  Transmission Date: 20200409
  Serious: No
  Sender: FDA-Public Use
  Company Number: US-OXFORD PHARMACEUTICALS, LLC-2019OXF00091

PATIENT

DRUGS (2)
  1. PRIMIDONE. [Suspect]
     Active Substance: PRIMIDONE
     Dosage: 1000 MG
  2. PRIMIDONE. [Suspect]
     Active Substance: PRIMIDONE
     Dosage: 750 MG

REACTIONS (1)
  - Hepatic enzyme increased [Unknown]
